FAERS Safety Report 6734038-6 (Version None)
Quarter: 2010Q2

REPORT INFORMATION
  Report Type: 
  Country: None (occurrence: None)
  Receive Date: 20100520
  Receipt Date: 20100508
  Transmission Date: 20101027
  Serious: Yes (Other)
  Sender: FDA-Public Use
  Company Number: US-PFIZER INC-2010058836

PATIENT
  Sex: Female
  Weight: 78.005 kg

DRUGS (8)
  1. LYRICA [Suspect]
     Indication: FIBROMYALGIA
     Dosage: 100 MG, 2X/DAY
     Route: 048
     Dates: start: 20100505, end: 20100506
  2. ALLOPURINOL [Concomitant]
     Indication: RHEUMATOID ARTHRITIS
     Dosage: 300 MG, 1X/DAY
     Route: 048
  3. INDERAL [Concomitant]
     Indication: HEART RATE INCREASED
     Dosage: 75 MG, 2X/DAY
     Route: 048
  4. ZAROXOLYN [Concomitant]
     Indication: HYPERTENSION
     Dosage: 10 MG, 2X/DAY
     Route: 048
  5. BUMEX [Concomitant]
     Indication: RENAL FAILURE
     Dosage: 10 MG, 1X/DAY
     Route: 048
  6. DITROPAN [Concomitant]
     Indication: RENAL FAILURE
     Dosage: 5 MG, 2X/DAY
     Route: 048
  7. POTASSIUM [Concomitant]
     Indication: CARDIAC DISORDER
     Dosage: 20 MG, 2X/DAY
     Route: 048
  8. ELAVIL [Concomitant]
     Indication: PAIN IN EXTREMITY
     Dosage: 25 MG, UNK
     Route: 048

REACTIONS (1)
  - CEREBROVASCULAR ACCIDENT [None]
